FAERS Safety Report 25548246 (Version 1)
Quarter: 2025Q3

REPORT INFORMATION
  Report Type: Spontaneous
  Country: US (occurrence: US)
  Receive Date: 20250714
  Receipt Date: 20250714
  Transmission Date: 20251021
  Serious: No
  Sender: ROCHE
  Company Number: US-ROCHE-10000335986

PATIENT
  Sex: Female
  Weight: 81.64 kg

DRUGS (1)
  1. OCREVUS [Suspect]
     Active Substance: OCRELIZUMAB
     Indication: Multiple sclerosis
     Route: 065
     Dates: start: 202504

REACTIONS (2)
  - Oedema [Not Recovered/Not Resolved]
  - Fluid retention [Not Recovered/Not Resolved]
